FAERS Safety Report 6120735-2 (Version None)
Quarter: 2009Q1

REPORT INFORMATION
  Report Type: 
  Country: None (occurrence: None)
  Receive Date: 20090317
  Receipt Date: 20090311
  Transmission Date: 20090719
  Serious: Yes (Other)
  Sender: FDA-Public Use
  Company Number: US-ELI_LILLY_AND_COMPANY-US200902000724

PATIENT
  Sex: Female

DRUGS (12)
  1. BYETTA [Suspect]
     Indication: TYPE 2 DIABETES MELLITUS
     Dosage: 5 UG, 2/D
     Route: 058
     Dates: start: 20050817
  2. LANTUS [Concomitant]
     Indication: TYPE 2 DIABETES MELLITUS
     Dosage: 47 U, EACH EVENING
     Route: 058
  3. LIPITOR [Concomitant]
     Dosage: 240 MG, DAILY (1/D)
     Route: 048
  4. AVAPRO [Concomitant]
     Dosage: 450 MG, DAILY (1/D)
     Route: 048
  5. ATENOLOL [Concomitant]
     Dosage: 100 MG, EACH MORNING
  6. ATENOLOL [Concomitant]
     Dosage: 50 MG, EACH EVENING
  7. ASPIRIN [Concomitant]
     Dosage: 325 MG, UNK
     Route: 048
  8. HYDROCHLOROTHIAZIDE [Concomitant]
     Indication: FLUID IMBALANCE
     Dosage: 25 MG, DAILY (1/D)
     Route: 048
  9. FOLTX [Concomitant]
     Route: 048
  10. ALOPURINOL [Concomitant]
     Dosage: 100 MG, DAILY (1/D)
  11. LUTEIN [Concomitant]
  12. IMDUR [Concomitant]
     Dosage: UNK, DAILY (1/D)
     Dates: start: 20081001

REACTIONS (2)
  - DIABETIC RETINOPATHY [None]
  - MACULAR DEGENERATION [None]
